FAERS Safety Report 26140184 (Version 1)
Quarter: 2025Q4

REPORT INFORMATION
  Report Type: Spontaneous
  Country: US (occurrence: US)
  Receive Date: 20251210
  Receipt Date: 20251210
  Transmission Date: 20260118
  Serious: No
  Sender: Kenvue
  Company Number: US-KENVUE-20251109424

PATIENT
  Sex: Male

DRUGS (1)
  1. MOTRIN INFANTS [Suspect]
     Active Substance: IBUPROFEN
     Indication: Accidental exposure to product
     Dosage: HE MIGHT HAVE TAKEN THREE DOSES, THE HIGHEST AMOUNT, WHICH IS ABOUT A QUARTER OF THE BOTTLE

REACTIONS (1)
  - Accidental exposure to product [Unknown]
